FAERS Safety Report 23247533 (Version 1)
Quarter: 2023Q4

REPORT INFORMATION
  Report Type: Spontaneous
  Country: US (occurrence: US)
  Receive Date: 20231130
  Receipt Date: 20231130
  Transmission Date: 20240110
  Serious: No
  Sender: FDA-Public Use
  Company Number: US-APELLIS PHARMACEUTICALS-APL-2023-002883

PATIENT
  Sex: Female

DRUGS (2)
  1. SYFOVRE [Suspect]
     Active Substance: PEGCETACOPLAN
     Indication: Product used for unknown indication
     Dosage: ONCE EVERY 2 MONTHS IN LEFT EYE (OS)
     Dates: start: 20230623, end: 20230623
  2. SYFOVRE [Suspect]
     Active Substance: PEGCETACOPLAN
     Dosage: ONCE EVERY 2 MONTHS IN LEFT EYE (OS)
     Dates: start: 20230818, end: 20230818

REACTIONS (1)
  - Respiratory tract infection [Unknown]
